FAERS Safety Report 13922883 (Version 2)
Quarter: 2017Q3

REPORT INFORMATION
  Report Type: Spontaneous
  Country: JP (occurrence: JP)
  Receive Date: 20170830
  Receipt Date: 20170901
  Transmission Date: 20171127
  Serious: Yes (Other)
  Sender: FDA-Public Use
  Company Number: JP-ASTRAZENECA-2017SE88058

PATIENT
  Age: 68 Year
  Sex: Male

DRUGS (9)
  1. JANUVIA [Concomitant]
     Active Substance: SITAGLIPTIN PHOSPHATE
     Route: 048
  2. NEXIUM [Suspect]
     Active Substance: ESOMEPRAZOLE MAGNESIUM
     Route: 048
     Dates: start: 2013
  3. CRESTOR [Suspect]
     Active Substance: ROSUVASTATIN CALCIUM
     Route: 048
  4. BAYASPIRIN [Suspect]
     Active Substance: ASPIRIN
     Dosage: DOSE UNKNOWN
     Route: 048
  5. METGLUCO [Concomitant]
     Active Substance: METFORMIN HYDROCHLORIDE
     Dosage: 250 MG NUMBER OF SEPARATE DOSAGES UNKNOWN
     Route: 048
  6. BASEN [Concomitant]
     Active Substance: VOGLIBOSE
     Dosage: 0.3 MG EVERY DAY NUMBER OF SEPARATE DOSAGES UNKNOWN
     Route: 048
  7. TANATRIL [Concomitant]
     Active Substance: IMIDAPRIL
     Route: 048
  8. LUNESTA [Concomitant]
     Active Substance: ESZOPICLONE
     Dosage: DOSE UNKNOWN
     Route: 048
  9. FRANDOL S [Concomitant]
     Active Substance: ISOSORBIDE DINITRATE
     Dosage: DOSE UNKNOWN
     Route: 062

REACTIONS (1)
  - Visual acuity reduced [Not Recovered/Not Resolved]

NARRATIVE: CASE EVENT DATE: 20170824
